FAERS Safety Report 24274473 (Version 1)
Quarter: 2024Q3

REPORT INFORMATION
  Report Type: Spontaneous
  Country: DE (occurrence: DE)
  Receive Date: 20240902
  Receipt Date: 20240902
  Transmission Date: 20241017
  Serious: Yes (Disabling, Congenital Anomaly, Other)
  Sender: TORRENT
  Company Number: None

PATIENT
  Sex: Female
  Weight: 2 kg

DRUGS (3)
  1. LAMOTRIGINE [Suspect]
     Active Substance: LAMOTRIGINE
     Indication: Product used for unknown indication
     Dosage: 400 MG/D/ UNTIL GW 8 50-0-100 MG/D, THEN INCREASED TO 2X200 MG/D
     Route: 064
  2. LEVETIRACETAM [Suspect]
     Active Substance: LEVETIRACETAM
     Indication: Product used for unknown indication
     Dosage: 5000 MG/D/UNTIL GW 8 2000 MG/D, THEN INCR. TO 2X2500 MG/D; 11-03-2023 TO 07-12-2023 FOR 271 DAYS
     Route: 064
  3. FOLIC ACID [Concomitant]
     Active Substance: FOLIC ACID
     Indication: Product used for unknown indication
     Dosage: DURATION OF DRUG: 11-03-2023 TO 07-12-2023 FOR 271 DAYS
     Route: 064

REACTIONS (2)
  - Limb reduction defect [Unknown]
  - Foetal exposure during pregnancy [Unknown]

NARRATIVE: CASE EVENT DATE: 20231201
